FAERS Safety Report 9263411 (Version 1)
Quarter: 2013Q2

REPORT INFORMATION
  Report Type: Report from Study
  Country: US (occurrence: US)
  Receive Date: 20130430
  Receipt Date: 20130430
  Transmission Date: 20140414
  Serious: No
  Sender: FDA-Public Use
  Company Number: US-ABBOTT-13P-163-1079138-00

PATIENT
  Age: 23 Year
  Sex: Male

DRUGS (1)
  1. CREON 24 [Suspect]
     Indication: CYSTIC FIBROSIS
     Dates: start: 201001

REACTIONS (2)
  - Pneumonia [Recovered/Resolved]
  - Weight decreased [Recovered/Resolved]
